FAERS Safety Report 5852136-6 (Version None)
Quarter: 2008Q3

REPORT INFORMATION
  Report Type: 
  Country: None (occurrence: None)
  Receive Date: 20080819
  Receipt Date: 20080819
  Transmission Date: 20090109
  Serious: Yes (Hospitalization)
  Sender: FDA-Public Use
  Company Number: None

PATIENT
  Age: 88 Year
  Sex: Male
  Weight: 107 kg

DRUGS (9)
  1. PLAVIX [Suspect]
     Indication: ANTIPLATELET THERAPY
     Dosage: 75MG DAILY PO  (DURATION: CHRONIC)
     Route: 048
  2. LOPRESSOR [Concomitant]
  3. AVAPRO [Concomitant]
  4. GABAPENTIN [Concomitant]
  5. FLOMAX [Concomitant]
  6. PROTONIX [Concomitant]
  7. VIT B12 [Concomitant]
  8. AVODART [Concomitant]
  9. VIT C [Concomitant]

REACTIONS (1)
  - EPISTAXIS [None]
